FAERS Safety Report 5161908-5 (Version None)
Quarter: 2006Q4

REPORT INFORMATION
  Report Type: 
  Country: None (occurrence: None)
  Receive Date: 20061130
  Receipt Date: 20061023
  Transmission Date: 20070319
  Serious: No
  Sender: FDA-Public Use
  Company Number: US-GLAXOSMITHKLINE-A0624552A

PATIENT
  Sex: Male

DRUGS (3)
  1. WELLBUTRIN XL [Suspect]
     Indication: LIBIDO DECREASED
     Dosage: 300MG PER DAY
     Route: 048
     Dates: start: 20061002
  2. ANDROGEL [Concomitant]
  3. KLONOPIN [Concomitant]

REACTIONS (7)
  - AGITATION [None]
  - DECREASED APPETITE [None]
  - DRUG INEFFECTIVE [None]
  - FEELING ABNORMAL [None]
  - INSOMNIA [None]
  - LIBIDO INCREASED [None]
  - WRONG TECHNIQUE IN DRUG USAGE PROCESS [None]
